FAERS Safety Report 5298595-1 (Version None)
Quarter: 2007Q2

REPORT INFORMATION
  Report Type: 
  Country: None (occurrence: None)
  Receive Date: 20070417
  Receipt Date: 20070406
  Transmission Date: 20071010
  Serious: Yes (Hospitalization)
  Sender: FDA-Public Use
  Company Number: DE-JNJFOC-20070401812

PATIENT
  Age: 14 Year
  Sex: Male

DRUGS (4)
  1. REMICADE [Suspect]
     Indication: CROHN'S DISEASE
     Route: 042
  2. IMURAN [Suspect]
     Indication: CROHN'S DISEASE
     Route: 048
  3. HYDROCORTISONE [Concomitant]
     Indication: CROHN'S DISEASE
     Route: 042
  4. OMEPRAZOLE [Concomitant]
     Indication: CROHN'S DISEASE
     Route: 048

REACTIONS (3)
  - CROHN'S DISEASE [None]
  - GRAND MAL CONVULSION [None]
  - LEUKOENCEPHALOPATHY [None]
